FAERS Safety Report 6219590-1 (Version None)
Quarter: 2009Q2

REPORT INFORMATION
  Report Type: 
  Country: None (occurrence: None)
  Receive Date: 20090609
  Receipt Date: 20090528
  Transmission Date: 20091009
  Serious: Yes (Other)
  Sender: FDA-Public Use
  Company Number: US-PFIZER INC-2006150524

PATIENT
  Sex: Female
  Weight: 59 kg

DRUGS (4)
  1. PROVERA [Suspect]
     Indication: HORMONE REPLACEMENT THERAPY
     Dosage: 10 MG, UNK
     Route: 048
     Dates: start: 19850101, end: 19860101
  2. PROVERA [Suspect]
     Dosage: 2.5 MG, UNK
     Route: 048
     Dates: start: 19850409, end: 19991201
  3. PREMARIN [Suspect]
     Indication: HORMONE REPLACEMENT THERAPY
     Dosage: 0.625 MG, UNK
     Dates: start: 19850409, end: 19991201
  4. PREMARIN [Suspect]
     Dosage: 0.3 MG, UNK
     Dates: start: 19860101

REACTIONS (1)
  - BREAST CANCER FEMALE [None]
